FAERS Safety Report 23501464 (Version 1)
Quarter: 2024Q1

REPORT INFORMATION
  Report Type: Spontaneous
  Country: DE (occurrence: None)
  Receive Date: 20240208
  Receipt Date: 20240208
  Transmission Date: 20240410
  Serious: Yes (Life-Threatening)
  Sender: FDA-Public Use
  Company Number: 2024A032415

PATIENT
  Sex: Male

DRUGS (10)
  1. ANDEXANET ALFA [Suspect]
     Active Substance: ANDEXANET ALFA
     Dosage: 2 X 200MG ANDEXANET ALFA = 400MG OVER 15MIN
     Route: 040
  2. ANDEXANET ALFA [Suspect]
     Active Substance: ANDEXANET ALFA
     Dosage: 480 MG OVER120MIN
     Route: 040
  3. ANDEXANET ALFA [Suspect]
     Active Substance: ANDEXANET ALFA
     Dosage: HIGH DOSE REGIMEN: 800MG
     Route: 040
  4. ANDEXANET ALFA [Suspect]
     Active Substance: ANDEXANET ALFA
     Dosage: 960 MG OVER 120MIN
     Route: 040
  5. ELIQUIS [Concomitant]
     Active Substance: APIXABAN
     Dosage: 1-0-1 TABLET DAILY
     Route: 048
  6. ATORVASTATIN CALCIUM [Concomitant]
     Active Substance: ATORVASTATIN CALCIUM
     Dosage: 0-0-1 TABLETS DAILY
     Route: 048
  7. BISOPROLOL FUMARATE [Concomitant]
     Active Substance: BISOPROLOL FUMARATE
     Dosage: 1-0-0 TABLETS DAILY
     Route: 048
  8. CANDESARTAN [Concomitant]
     Active Substance: CANDESARTAN
     Dosage: 0-0-1 TABLETS DAILY
     Route: 048
  9. EZETIMIB PUREN [Concomitant]
     Dosage: 1-0-0 TABLETS DAILY
     Route: 048
  10. DUTASTERIDE\TAMSULOSIN [Concomitant]
     Active Substance: DUTASTERIDE\TAMSULOSIN
     Dosage: 0.5MG/0.4MG, 1-0-0 CAPSULES DAILY
     Route: 048

REACTIONS (1)
  - Haemorrhage [Unknown]
